FAERS Safety Report 8133432-9 (Version None)
Quarter: 2012Q1

REPORT INFORMATION
  Report Type: 
  Country: None (occurrence: None)
  Receive Date: 20120213
  Receipt Date: 20120209
  Transmission Date: 20120608
  Serious: Yes (Other)
  Sender: FDA-Public Use
  Company Number: PHHY2012BR011285

PATIENT
  Sex: Male
  Weight: 97 kg

DRUGS (8)
  1. RADIOTHERAPY [Concomitant]
  2. PHENYTOIN [Concomitant]
     Indication: CONVULSION
     Dosage: 100 MG, TID
     Route: 048
     Dates: start: 20111201
  3. WARFARIN SODIUM [Concomitant]
     Indication: THROMBOSIS
     Route: 048
     Dates: start: 20111001
  4. TRILEPTAL [Suspect]
     Indication: CONVULSION
     Dosage: 600 MG, BID
     Route: 048
     Dates: start: 20110901
  5. DEXAMETHASONE [Concomitant]
     Indication: RADIOTHERAPY
     Dates: start: 20111201
  6. BACTRIM [Concomitant]
     Indication: RADIOTHERAPY
     Dosage: TWICE DAILY ON MONDAY, WEDNESDAY AND FRIDAY
     Dates: start: 20111201
  7. CHEMOTHERAPEUTICS NOS [Concomitant]
  8. LOSARTAN POTASSIUM [Concomitant]
     Indication: BLOOD PRESSURE
     Dosage: 100 MG, QD
     Route: 048

REACTIONS (3)
  - MUSCULOSKELETAL DISORDER [None]
  - THROMBOSIS [None]
  - WEIGHT INCREASED [None]
